FAERS Safety Report 8383247-1 (Version None)
Quarter: 2012Q2

REPORT INFORMATION
  Report Type: 
  Country: None (occurrence: None)
  Receive Date: 20120524
  Receipt Date: 20120509
  Transmission Date: 20120825
  Serious: Yes (Other)
  Sender: FDA-Public Use
  Company Number: JP-SANOFI-AVENTIS-2012SA033987

PATIENT

DRUGS (1)
  1. ALLEGRA [Suspect]
     Route: 048

REACTIONS (2)
  - ANAEMIA [None]
  - PANCYTOPENIA [None]
